FAERS Safety Report 5048804-9 (Version None)
Quarter: 2006Q3

REPORT INFORMATION
  Report Type: 
  Country: None (occurrence: None)
  Receive Date: 20060705
  Receipt Date: 20060620
  Transmission Date: 20061208
  Serious: Yes (Hospitalization)
  Sender: FDA-Public Use
  Company Number: 200611966GDS

PATIENT
  Age: 44 Year
  Sex: Male

DRUGS (7)
  1. ASPIRIN [Suspect]
     Indication: CEREBRAL INFARCTION
     Dosage: 100 MG, TOTAL DAILY, ORAL
     Route: 048
     Dates: start: 20040728, end: 20040823
  2. HEPARIN SODIUM [Concomitant]
  3. DEXTRAN [Concomitant]
  4. GLYCEOL [Concomitant]
  5. PLETAL [Concomitant]
  6. SIMVASTATIN [Concomitant]
  7. TAKEPRON [Concomitant]

REACTIONS (8)
  - ABDOMINAL PAIN [None]
  - BLOOD PRESSURE DECREASED [None]
  - DUODENITIS [None]
  - HAEMATOCHEZIA [None]
  - HAEMODYNAMIC INSTABILITY [None]
  - HAEMOGLOBIN DECREASED [None]
  - RECTAL ULCER [None]
  - SCAR [None]
